FAERS Safety Report 10706213 (Version 2)
Quarter: 2016Q4

REPORT INFORMATION
  Report Type: Spontaneous
  Country: CH (occurrence: CH)
  Receive Date: 20150113
  Receipt Date: 20161207
  Transmission Date: 20170206
  Serious: Yes (Hospitalization, Other)
  Sender: FDA-Public Use
  Company Number: CH-RANBAXY-2014R1-91286

PATIENT
  Age: 55 Year
  Sex: Female

DRUGS (2)
  1. IBUPROFEN. [Suspect]
     Active Substance: IBUPROFEN
     Indication: MUSCULOSKELETAL PAIN
     Dosage: 600 MG, BID
     Route: 065
  2. OSTRADIOL, OSTRIOL, NORETHISTERONE ACETATE [Concomitant]
     Indication: MENOPAUSE
     Dosage: 1 DF, DAILY
     Route: 065

REACTIONS (2)
  - Renal impairment [Recovered/Resolved]
  - Hypersensitivity vasculitis [Recovered/Resolved]
